FAERS Safety Report 4806429-1 (Version None)
Quarter: 2005Q4

REPORT INFORMATION
  Report Type: 
  Country: None (occurrence: None)
  Receive Date: 20051019
  Receipt Date: 20051019
  Transmission Date: 20060501
  Serious: Yes (Life-Threatening)
  Sender: FDA-Public Use
  Company Number: None

PATIENT
  Age: 69 Year
  Sex: Male
  Weight: 96.6162 kg

DRUGS (11)
  1. ZOSYN [Suspect]
     Indication: PYELONEPHRITIS
     Dosage: 3.375GM   OVER 30 MINUTES    IV
     Route: 042
     Dates: start: 20050704, end: 20050707
  2. ASPIRIN [Concomitant]
  3. ATENOLOL [Concomitant]
  4. CYLOBENZAPRINE [Concomitant]
  5. FELODIPINE [Concomitant]
  6. FINASTERIDE [Concomitant]
  7. LISINOPRIL [Concomitant]
  8. MORPHINE [Concomitant]
  9. NAPROXEN [Concomitant]
  10. OMEPRAZOLE [Concomitant]
  11. TERAZOSIN HCL [Concomitant]

REACTIONS (1)
  - PLATELET COUNT DECREASED [None]
